FAERS Safety Report 6390278-X (Version None)
Quarter: 2009Q4

REPORT INFORMATION
  Report Type: 
  Country: None (occurrence: None)
  Receive Date: 20091003
  Receipt Date: 20090930
  Transmission Date: 20100525
  Serious: Yes (Hospitalization, Disabling)
  Sender: FDA-Public Use
  Company Number: SP02530

PATIENT
  Age: 63 Year
  Sex: Female
  Weight: 100.2449 kg

DRUGS (4)
  1. XIFAXAN [Suspect]
     Indication: OVERGROWTH BACTERIAL
     Dosage: 1200 MG (400 MG, 3 IN 1 D), ORAL
     Route: 048
     Dates: start: 20090508, end: 20090518
  2. ZOSTAVEX [Suspect]
     Indication: IMMUNISATION
     Dates: start: 20090421, end: 20090421
  3. LEXAPRO [Concomitant]
  4. RESTORIL [Concomitant]

REACTIONS (2)
  - DRUG INTERACTION [None]
  - HERPES ZOSTER [None]
